FAERS Safety Report 8966786 (Version 1)
Quarter: 2012Q4

REPORT INFORMATION
  Report Type: 
  Country: US (occurrence: US)
  Receive Date: 20121214
  Receipt Date: 20121214
  Transmission Date: 20130627
  Serious: No
  Sender: FDA-Public Use
  Company Number: US-009507513-1212USA005154

PATIENT
  Age: 69 Year
  Sex: Male

DRUGS (2)
  1. AZASITE [Suspect]
     Indication: EYE INFECTION
     Dosage: UNK Gtt, bid
     Dates: start: 20121208, end: 20121209
  2. AZASITE [Suspect]
     Dosage: UNK Gtt, qd
     Dates: start: 20121210, end: 20121214

REACTIONS (1)
  - Eye irritation [Recovering/Resolving]
